FAERS Safety Report 22013033 (Version 1)
Quarter: 2023Q1

REPORT INFORMATION
  Report Type: Spontaneous
  Country: CN (occurrence: CN)
  Receive Date: 20230220
  Receipt Date: 20230220
  Transmission Date: 20230418
  Serious: Yes (Life-Threatening, Hospitalization, Other)
  Sender: FDA-Public Use
  Company Number: CN-BAYER-2023A020233

PATIENT
  Age: 52 Year
  Sex: Female
  Weight: 57.5 kg

DRUGS (2)
  1. ULTRAVIST [Suspect]
     Active Substance: IOPROMIDE
     Indication: Computerised tomogram thorax
     Dosage: 80 ML, ONCE
     Route: 042
     Dates: start: 20230213, end: 20230213
  2. ULTRAVIST [Suspect]
     Active Substance: IOPROMIDE
     Indication: Pneumonia

REACTIONS (16)
  - Anaphylactic shock [Recovering/Resolving]
  - Amaurosis [Recovering/Resolving]
  - Headache [Recovering/Resolving]
  - Dizziness [Recovering/Resolving]
  - Abdominal pain [Recovering/Resolving]
  - Nausea [Recovering/Resolving]
  - Hypoaesthesia [Recovering/Resolving]
  - Asthenia [Recovering/Resolving]
  - Dysphonia [Recovering/Resolving]
  - Hyperhidrosis [Recovering/Resolving]
  - Anal incontinence [Recovering/Resolving]
  - Urinary incontinence [Recovering/Resolving]
  - Erythema [Recovering/Resolving]
  - Face oedema [Recovering/Resolving]
  - Blood pressure decreased [Recovered/Resolved]
  - Heart rate decreased [Recovering/Resolving]

NARRATIVE: CASE EVENT DATE: 20230213
